FAERS Safety Report 5079647-8 (Version None)
Quarter: 2006Q3

REPORT INFORMATION
  Report Type: 
  Country: None (occurrence: None)
  Receive Date: 20060808
  Receipt Date: 20060725
  Transmission Date: 20061208
  Serious: Yes (Death, Hospitalization)
  Sender: FDA-Public Use
  Company Number: CERZ-11287

PATIENT
  Age: 72 Year
  Sex: Male

DRUGS (2)
  1. CEREZYME [Suspect]
     Indication: GAUCHER'S DISEASE
     Dosage: 60 U/KG Q2WKS IV
     Route: 042
     Dates: start: 19941222, end: 20060701
  2. INSULIN [Concomitant]

REACTIONS (7)
  - DEMENTIA [None]
  - HYPERLIPIDAEMIA [None]
  - HYPERTENSION [None]
  - HYPOTENSION [None]
  - PARKINSON'S DISEASE [None]
  - PNEUMONIA ASPIRATION [None]
  - PNEUMONIA STAPHYLOCOCCAL [None]
